FAERS Safety Report 4499179-5 (Version None)
Quarter: 2004Q4

REPORT INFORMATION
  Report Type: 
  Country: None (occurrence: None)
  Receive Date: 20041111
  Receipt Date: 20040824
  Transmission Date: 20050328
  Serious: Yes (Hospitalization, Other)
  Sender: FDA-Public Use
  Company Number: PHFR2004GB03303

PATIENT
  Age: 56 Year
  Sex: Female

DRUGS (1)
  1. LAMISIL [Suspect]
     Dosage: 1/DAY
     Route: 048
     Dates: start: 20000914

REACTIONS (2)
  - DERMATITIS EXFOLIATIVE [None]
  - ECZEMA [None]
